FAERS Safety Report 9450421 (Version 4)
Quarter: 2013Q4

REPORT INFORMATION
  Report Type: Spontaneous
  Country: DE (occurrence: None)
  Receive Date: 20130807
  Receipt Date: 20131030
  Transmission Date: 20140711
  Serious: Yes (Other)
  Sender: FDA-Public Use
  Company Number: 1307-973

PATIENT
  Age: 88 Year
  Sex: Female

DRUGS (1)
  1. EYELEA [Suspect]
     Indication: AGE-RELATED MACULAR DEGENERATION
     Route: 031
     Dates: start: 20130626, end: 20130626

REACTIONS (1)
  - Subretinal haematoma [None]
